FAERS Safety Report 14166742 (Version 1)
Quarter: 2017Q4

REPORT INFORMATION
  Report Type: Spontaneous
  Country: US (occurrence: US)
  Receive Date: 20171107
  Receipt Date: 20171107
  Transmission Date: 20180321
  Serious: No
  Sender: FDA-Public Use
  Company Number: US-BAUSCH-BL-2017-005313

PATIENT
  Age: 71 Year
  Sex: Female

DRUGS (3)
  1. ZIRGAN [Suspect]
     Active Substance: GANCICLOVIR
     Dosage: 1 APPLICATION TO THE LEFT EYE
     Route: 047
     Dates: start: 20170228
  2. SYNTHROID [Concomitant]
     Active Substance: LEVOTHYROXINE SODIUM
     Indication: THYROID DISORDER
     Route: 048
  3. ZIRGAN [Suspect]
     Active Substance: GANCICLOVIR
     Indication: OPHTHALMIC HERPES ZOSTER
     Dosage: 1 APPLICATION TO THE LEFT EYE
     Route: 047
     Dates: start: 20170223

REACTIONS (1)
  - Vision blurred [Not Recovered/Not Resolved]

NARRATIVE: CASE EVENT DATE: 20170227
